FAERS Safety Report 20718593 (Version 1)
Quarter: 2022Q2

REPORT INFORMATION
  Report Type: Spontaneous
  Country: FR (occurrence: FR)
  Receive Date: 20220418
  Receipt Date: 20220418
  Transmission Date: 20220720
  Serious: Yes (Other)
  Sender: FDA-Public Use
  Company Number: FR-AFSSAPS-DJ20220885

PATIENT
  Age: 93 Year
  Sex: Female
  Weight: 96 kg

DRUGS (4)
  1. AMOXICILLIN [Suspect]
     Active Substance: AMOXICILLIN
     Indication: Helicobacter infection
     Dosage: 3 GRAM, ONCE A DAY (1G 3 TIMES A DAY)
     Route: 048
     Dates: start: 20211124, end: 20211208
  2. METRONIDAZOLE [Suspect]
     Active Substance: METRONIDAZOLE
     Indication: Helicobacter infection
     Dosage: 1000 MILLIGRAM, ONCE A DAY (500 MG TWO TIMES A DAY)
     Route: 048
     Dates: start: 20211124, end: 20211208
  3. CLARITHROMYCIN [Suspect]
     Active Substance: CLARITHROMYCIN
     Indication: Helicobacter infection
     Dosage: 1000 MILLIGRAM, ONCE A DAY (250 MG FOUR TIMES A DAY)
     Route: 048
     Dates: start: 20211124, end: 20211208
  4. FEBUXOSTAT [Suspect]
     Active Substance: FEBUXOSTAT
     Indication: Gout
     Route: 048
     Dates: start: 20211201, end: 20211207

REACTIONS (1)
  - Mixed liver injury [Recovering/Resolving]

NARRATIVE: CASE EVENT DATE: 20211208
